FAERS Safety Report 6767395-5 (Version None)
Quarter: 2010Q2

REPORT INFORMATION
  Report Type: 
  Country: None (occurrence: None)
  Receive Date: 20100614
  Receipt Date: 20100607
  Transmission Date: 20101027
  Serious: Yes (Other)
  Sender: FDA-Public Use
  Company Number: CA-ASTRAZENECA-2010SE26515

PATIENT
  Age: 58 Year
  Sex: Male

DRUGS (12)
  1. CRESTOR [Suspect]
     Route: 048
  2. EZETROL [Interacting]
     Route: 048
  3. NEXIUM [Concomitant]
  4. METOPROLOL TARTRATE [Concomitant]
  5. ASPIRIN [Concomitant]
  6. DESIPRAMINE HCL [Concomitant]
  7. DOMPERIDONE [Concomitant]
  8. PANTOPRAZOLE [Concomitant]
  9. ZANTAC [Concomitant]
  10. SERTRALINE HCL [Concomitant]
  11. MICARDIS [Concomitant]
  12. ANDRIOL [Concomitant]

REACTIONS (22)
  - ALANINE AMINOTRANSFERASE INCREASED [None]
  - ASPARTATE AMINOTRANSFERASE INCREASED [None]
  - BLOOD ALBUMIN DECREASED [None]
  - BLOOD ALKALINE PHOSPHATASE INCREASED [None]
  - BLOOD BILIRUBIN INCREASED [None]
  - BLOOD CREATININE INCREASED [None]
  - CHROMATURIA [None]
  - DRUG INTERACTION [None]
  - EPIGASTRIC DISCOMFORT [None]
  - EXCORIATION [None]
  - FAECES PALE [None]
  - GALLBLADDER DISORDER [None]
  - GAMMA-GLUTAMYLTRANSFERASE INCREASED [None]
  - HEPATIC ENZYME INCREASED [None]
  - HUNGER [None]
  - HYPOPHAGIA [None]
  - JAUNDICE [None]
  - JAUNDICE CHOLESTATIC [None]
  - PRURITUS [None]
  - SCAN ABDOMEN ABNORMAL [None]
  - ULTRASOUND ABDOMEN ABNORMAL [None]
  - WEIGHT DECREASED [None]
